FAERS Safety Report 9642964 (Version 2)
Quarter: 2013Q4

REPORT INFORMATION
  Report Type: Report from Study
  Country: US (occurrence: US)
  Receive Date: 20131024
  Receipt Date: 20131024
  Transmission Date: 20140711
  Serious: Yes (Hospitalization, Other)
  Sender: FDA-Public Use
  Company Number: PHHO2012US011925

PATIENT
  Age: 76 Year
  Sex: Male

DRUGS (1)
  1. SOM230 [Suspect]
     Indication: PANCREATIC CARCINOMA
     Dosage: 900 UG, BID
     Route: 058
     Dates: start: 20120814, end: 20120814

REACTIONS (10)
  - Hypotension [Recovered/Resolved]
  - Hyperglycaemia [Recovered/Resolved]
  - Appendicitis perforated [Recovered/Resolved]
  - Lung infection [Recovered/Resolved]
  - Impaired gastric emptying [Recovered/Resolved]
  - Wound infection [Recovered/Resolved]
  - Device related infection [Recovered/Resolved]
  - Renal failure acute [Recovered/Resolved]
  - Myocardial infarction [Recovered/Resolved]
  - Anaemia [Recovered/Resolved]
